FAERS Safety Report 18529584 (Version 2)
Quarter: 2020Q4

REPORT INFORMATION
  Report Type: Spontaneous
  Country: US (occurrence: US)
  Receive Date: 20201120
  Receipt Date: 20201214
  Transmission Date: 20210114
  Serious: No
  Sender: FDA-Public Use
  Company Number: US-NOVOPROD-714010

PATIENT
  Age: 75 Year
  Sex: Male

DRUGS (2)
  1. LEVEMIR [Suspect]
     Active Substance: INSULIN DETEMIR
     Indication: DIABETES MELLITUS
     Dosage: 85 IU, QD (80 AT NIGHT, 5 IN AM)
     Route: 058
     Dates: start: 2010
  2. NOVOLOG [Suspect]
     Active Substance: INSULIN ASPART
     Indication: DIABETES MELLITUS
     Dosage: 10 PERCENT OF WHATEVER THE SUGAR READING IS OR 10% OF BLOOD SUGAR READING MINUS 10 UNITS.
     Route: 058
     Dates: start: 2010

REACTIONS (3)
  - Blood glucose increased [Not Recovered/Not Resolved]
  - Intentional product misuse [Unknown]
  - Pollakiuria [Not Recovered/Not Resolved]

NARRATIVE: CASE EVENT DATE: 202001
